FAERS Safety Report 21402594 (Version 2)
Quarter: 2022Q4

REPORT INFORMATION
  Report Type: Spontaneous
  Country: US (occurrence: US)
  Receive Date: 20221003
  Receipt Date: 20221018
  Transmission Date: 20230113
  Serious: Yes (Other)
  Sender: FDA-Public Use
  Company Number: US-INTRA-CELLULAR THERAPIES, INC.-2022ICT01259

PATIENT
  Age: 76 Year
  Sex: Female
  Weight: 64.399 kg

DRUGS (18)
  1. CAPLYTA [Suspect]
     Active Substance: LUMATEPERONE
     Indication: Schizophrenia
     Dosage: 42 MG, 1X/DAY
     Route: 048
     Dates: start: 20220808, end: 20220822
  2. RISPERDAL [Suspect]
     Active Substance: RISPERIDONE
     Dosage: 3 MG, 1X/DAY
     Dates: end: 2022
  3. RISPERDAL [Suspect]
     Active Substance: RISPERIDONE
     Dosage: TAPERED OFF OVER 2 WEEKS, WHILE CROSS-TAPERED TO CAPLYTA
     Dates: start: 2022, end: 202208
  4. RISPERDAL [Suspect]
     Active Substance: RISPERIDONE
     Dosage: UNK
     Dates: start: 202208
  5. COGENTIN [Concomitant]
     Active Substance: BENZTROPINE MESYLATE
     Dosage: 1 MG, 2X/DAY
  6. HYDROCHLOROTHIAZIDE [Concomitant]
     Active Substance: HYDROCHLOROTHIAZIDE
     Dosage: 12.5 MG, 1X/DAY
  7. PRAZOSIN [Concomitant]
     Active Substance: PRAZOSIN
     Dosage: 2 MG, 1X/DAY AT BEDTIME
  8. VALSARTAN [Concomitant]
     Active Substance: VALSARTAN
     Dosage: 40 MG, 1X/DAY
  9. TRAZODONE [Concomitant]
     Active Substance: TRAZODONE HYDROCHLORIDE
     Dosage: 150 MG, 1X/DAY AT BEDTIME
  10. LIPITOR [Concomitant]
     Active Substance: ATORVASTATIN CALCIUM
     Dosage: 20 MG, 1X/DAY AT BEDTIME
  11. DEXILANT [Concomitant]
     Active Substance: DEXLANSOPRAZOLE
     Dosage: 60 MG, 1X/DAY
  12. LEXAPRO [Concomitant]
     Active Substance: ESCITALOPRAM OXALATE
     Dosage: 20 MG, 1X/DAY
  13. VASCEPA [Concomitant]
     Active Substance: ICOSAPENT ETHYL
     Dosage: 2 G, 2X/DAY
  14. FOSAMAX [Concomitant]
     Active Substance: ALENDRONATE SODIUM
     Dosage: 5 MG, 1X/DAY
  15. ASPIRIN [Concomitant]
     Active Substance: ASPIRIN
     Dosage: 81 MG, 1X/DAY
  16. VITAMIN D2 [Concomitant]
     Active Substance: ERGOCALCIFEROL
     Dosage: 50,000 UNK, 1X/WEEK
  17. BETHANECHOL [Concomitant]
     Active Substance: BETHANECHOL
     Dosage: 25 MG, 2X/DAY
  18. FISH OIL/ OMEGA-3 FATTY ACIDS [Concomitant]
     Dosage: 340-1000 MG, ^Q2^

REACTIONS (4)
  - Psychotic disorder [Recovering/Resolving]
  - Drug withdrawal syndrome [Recovering/Resolving]
  - Akathisia [Recovered/Resolved]
  - Dyskinesia [Recovered/Resolved]

NARRATIVE: CASE EVENT DATE: 20220801
